FAERS Safety Report 15111368 (Version 6)
Quarter: 2022Q2

REPORT INFORMATION
  Report Type: Spontaneous
  Country: CA (occurrence: CA)
  Receive Date: 20180705
  Receipt Date: 20220505
  Transmission Date: 20220721
  Serious: Yes (Life-Threatening, Disabling, Other)
  Sender: FDA-Public Use
  Company Number: CA-NAPPMUNDI-CAN-2018-0008819

PATIENT
  Age: 52 Year
  Sex: Female

DRUGS (66)
  1. BUTRANS [Suspect]
     Active Substance: BUPRENORPHINE
     Indication: Pain
     Dosage: UNK
     Route: 062
  2. BUTRANS [Suspect]
     Active Substance: BUPRENORPHINE
     Dosage: UNK
     Route: 065
  3. BUTRANS [Suspect]
     Active Substance: BUPRENORPHINE
     Dosage: UNK
     Route: 065
  4. BUTRANS [Suspect]
     Active Substance: BUPRENORPHINE
     Dosage: UNK
     Route: 062
  5. BUTRANS [Suspect]
     Active Substance: BUPRENORPHINE
     Dosage: UNK
     Route: 065
  6. MORPHINE SULFATE [Suspect]
     Active Substance: MORPHINE SULFATE
     Indication: Pain
     Dosage: UNK
     Route: 065
  7. MORPHINE SULFATE [Suspect]
     Active Substance: MORPHINE SULFATE
     Dosage: UNK
     Route: 042
  8. MORPHINE SULFATE [Suspect]
     Active Substance: MORPHINE SULFATE
     Dosage: UNK
     Route: 030
  9. MORPHINE SULFATE [Suspect]
     Active Substance: MORPHINE SULFATE
     Dosage: UNK
     Route: 065
  10. MORPHINE SULFATE [Suspect]
     Active Substance: MORPHINE SULFATE
     Dosage: UNK
     Route: 042
  11. MORPHINE SULFATE [Suspect]
     Active Substance: MORPHINE SULFATE
     Dosage: UNK
     Route: 030
  12. MORPHINE SULFATE [Suspect]
     Active Substance: MORPHINE SULFATE
     Dosage: UNK
     Route: 065
  13. OXYCONTIN [Suspect]
     Active Substance: OXYCODONE HYDROCHLORIDE
     Indication: Pain
     Dosage: 2 DF, UNK
     Route: 065
  14. OXYCONTIN [Suspect]
     Active Substance: OXYCODONE HYDROCHLORIDE
     Dosage: 2 DF, UNK (1 EVERY 1 DAYS)
     Route: 065
  15. OXYCONTIN [Suspect]
     Active Substance: OXYCODONE HYDROCHLORIDE
     Dosage: 2 UNK, UNK
     Route: 065
  16. OXYCONTIN [Suspect]
     Active Substance: OXYCODONE HYDROCHLORIDE
     Dosage: 2 DF, DAILY
     Route: 065
  17. OXYCONTIN [Suspect]
     Active Substance: OXYCODONE HYDROCHLORIDE
     Dosage: 2 DF, DAILY
     Route: 065
  18. OXYCONTIN [Suspect]
     Active Substance: OXYCODONE HYDROCHLORIDE
     Dosage: 2 DF, DAILY
     Route: 048
  19. OXYCONTIN [Suspect]
     Active Substance: OXYCODONE HYDROCHLORIDE
     Dosage: 2 DF, UNK
     Route: 065
  20. OXYCONTIN [Suspect]
     Active Substance: OXYCODONE HYDROCHLORIDE
     Dosage: 2 DF, DAILY
     Route: 065
  21. OXYCONTIN [Suspect]
     Active Substance: OXYCODONE HYDROCHLORIDE
     Dosage: 2 DF, UNK
     Route: 065
  22. OXYCONTIN [Suspect]
     Active Substance: OXYCODONE HYDROCHLORIDE
     Dosage: 2 DF, DAILY
     Route: 048
  23. CODEINE [Suspect]
     Active Substance: CODEINE
     Indication: Pain
     Dosage: UNK, PRN [AS REQUIRED]
     Route: 065
  24. CODEINE [Suspect]
     Active Substance: CODEINE
     Dosage: UNK, PRN [AS REQUIRED]
     Route: 065
  25. CODEINE [Suspect]
     Active Substance: CODEINE
     Dosage: UNK, PRN [AS REQUIRED]
     Route: 065
  26. CODEINE [Suspect]
     Active Substance: CODEINE
     Dosage: UNK, PRN [AS REQUIRED]
     Route: 065
  27. CODEINE [Suspect]
     Active Substance: CODEINE
     Dosage: UNK
     Route: 065
  28. CODEINE [Suspect]
     Active Substance: CODEINE
     Dosage: UNK, PRN [AS REQUIRED]
     Route: 065
  29. CODEINE [Suspect]
     Active Substance: CODEINE
     Dosage: UNK
     Route: 065
  30. CODEINE [Suspect]
     Active Substance: CODEINE
     Dosage: UNK, PRN [AS REQUIRED]
     Route: 065
  31. CODEINE [Suspect]
     Active Substance: CODEINE
     Dosage: UNK, PRN [AS REQUIRED]
     Route: 065
  32. CODEINE [Suspect]
     Active Substance: CODEINE
     Dosage: UNK
     Route: 065
  33. CODEINE [Suspect]
     Active Substance: CODEINE
     Dosage: UNK, PRN [AS REQUIRED]
     Route: 065
  34. CODEINE [Suspect]
     Active Substance: CODEINE
     Dosage: UNK, PRN [AS REQUIRED]
     Route: 065
  35. CODEINE [Suspect]
     Active Substance: CODEINE
     Dosage: UNK
     Route: 065
  36. CODEINE [Suspect]
     Active Substance: CODEINE
     Dosage: UNK, PRN [AS REQUIRED]
     Route: 065
  37. CODEINE [Suspect]
     Active Substance: CODEINE
     Dosage: UNK, PRN [AS REQUIRED]
     Route: 065
  38. CODEINE [Suspect]
     Active Substance: CODEINE
     Dosage: UNK
     Route: 065
  39. ACETAMINOPHEN [Suspect]
     Active Substance: ACETAMINOPHEN
     Indication: Pain
     Dosage: UNK
     Route: 065
  40. CELEBREX [Suspect]
     Active Substance: CELECOXIB
     Indication: Pain
     Dosage: UNK
     Route: 065
  41. CELEBREX [Suspect]
     Active Substance: CELECOXIB
     Dosage: UNK
     Route: 065
  42. CELEBREX [Suspect]
     Active Substance: CELECOXIB
     Dosage: UNK
     Route: 065
  43. CELEBREX [Suspect]
     Active Substance: CELECOXIB
     Dosage: UNK
     Route: 065
  44. CELEBREX [Suspect]
     Active Substance: CELECOXIB
     Dosage: UNK
     Route: 065
  45. CELEBREX [Suspect]
     Active Substance: CELECOXIB
     Dosage: UNK
     Route: 065
  46. DICLOFENAC [Suspect]
     Active Substance: DICLOFENAC
     Indication: Pain
     Dosage: UNK
     Route: 065
  47. HYDROCODONE [Suspect]
     Active Substance: HYDROCODONE
     Indication: Pain
     Dosage: UNK
     Route: 065
  48. TYLENOL WITH CODEINE [Suspect]
     Active Substance: ACETAMINOPHEN\CODEINE PHOSPHATE
     Indication: Pain
     Dosage: UNK
     Route: 065
  49. TYLENOL WITH CODEINE [Suspect]
     Active Substance: ACETAMINOPHEN\CODEINE PHOSPHATE
     Indication: Pain
     Dosage: UNK
     Route: 065
  50. TYLENOL WITH CODEINE [Suspect]
     Active Substance: ACETAMINOPHEN\CODEINE PHOSPHATE
     Dosage: UNK
     Route: 065
  51. CAFFEINE CITRATE [Suspect]
     Active Substance: CAFFEINE CITRATE
     Indication: Pain
     Dosage: UNK
     Route: 065
  52. CAMBIA [Suspect]
     Active Substance: DICLOFENAC POTASSIUM
     Indication: Pain
     Dosage: UNK
     Route: 065
  53. ACETAMINOPHEN AND CODEINE [Suspect]
     Active Substance: ACETAMINOPHEN\CODEINE PHOSPHATE
     Indication: Pain
     Dosage: UNK
     Route: 065
  54. ACETAMINOPHEN\CODEINE PHOSPHATE [Suspect]
     Active Substance: ACETAMINOPHEN\CODEINE PHOSPHATE
     Indication: Pain
     Dosage: UNK
     Route: 065
  55. ACETAMINOPHEN AND CODEINE [Suspect]
     Active Substance: ACETAMINOPHEN\CODEINE PHOSPHATE
     Indication: Pain
     Dosage: UNK
     Route: 065
  56. ACETAMINOPHEN AND CODEINE [Suspect]
     Active Substance: ACETAMINOPHEN\CODEINE PHOSPHATE
     Dosage: UNK
     Route: 065
  57. DICLOFENAC SODIUM [Suspect]
     Active Substance: DICLOFENAC SODIUM
     Indication: Pain
     Dosage: UNK
     Route: 065
  58. HYDROCODONE BITARTRATE [Suspect]
     Active Substance: HYDROCODONE BITARTRATE
     Indication: Pain
     Dosage: UNK
     Route: 065
  59. DICLOFENAC POTASSIUM [Suspect]
     Active Substance: DICLOFENAC POTASSIUM
     Indication: Pain
     Dosage: UNK
     Route: 065
  60. TYLENOL WITH CODEINE [Suspect]
     Active Substance: ACETAMINOPHEN\CODEINE PHOSPHATE
     Indication: Pain
     Dosage: UNK
     Route: 065
  61. TYLENOL WITH CODEINE [Suspect]
     Active Substance: ACETAMINOPHEN\CODEINE PHOSPHATE
     Indication: Pain
     Dosage: UNK
     Route: 065
  62. TYLENOL WITH CODEINE [Suspect]
     Active Substance: ACETAMINOPHEN\CODEINE PHOSPHATE
     Dosage: UNK
     Route: 065
  63. ACETAMINOPHEN\CODEINE PHOSPHATE [Suspect]
     Active Substance: ACETAMINOPHEN\CODEINE PHOSPHATE
     Indication: Pain
     Dosage: UNK
     Route: 065
  64. ACETAMINOPHEN\CODEINE PHOSPHATE [Suspect]
     Active Substance: ACETAMINOPHEN\CODEINE PHOSPHATE
     Indication: Pain
     Dosage: UNK
     Route: 065
  65. ACETAMINOPHEN\CODEINE PHOSPHATE [Suspect]
     Active Substance: ACETAMINOPHEN\CODEINE PHOSPHATE
     Dosage: UNK
     Route: 065
  66. ACETAMINOPHEN AND CODEINE [Suspect]
     Active Substance: ACETAMINOPHEN\CODEINE PHOSPHATE
     Indication: Pain
     Dosage: UNK
     Route: 065

REACTIONS (13)
  - Overdose [Unknown]
  - Suicidal ideation [Unknown]
  - Confusional state [Unknown]
  - Back pain [Unknown]
  - Gastric ulcer [Unknown]
  - Mental impairment [Unknown]
  - Condition aggravated [Unknown]
  - Gastric disorder [Unknown]
  - Overweight [Unknown]
  - Arthralgia [Unknown]
  - Bedridden [Unknown]
  - Mental disorder [Unknown]
  - Dysphagia [Unknown]
